FAERS Safety Report 19935445 (Version 1)
Quarter: 2021Q4

REPORT INFORMATION
  Report Type: Spontaneous
  Country: FR (occurrence: FR)
  Receive Date: 20211009
  Receipt Date: 20211009
  Transmission Date: 20220303
  Serious: Yes (Hospitalization, Congenital Anomaly, Other)
  Sender: FDA-Public Use
  Company Number: FR-ABBVIE-21K-056-4108990-00

PATIENT
  Sex: Female

DRUGS (1)
  1. VALPROATE SODIUM [Suspect]
     Active Substance: VALPROATE SODIUM
     Indication: Maternal exposure timing unspecified
     Route: 064

REACTIONS (50)
  - Weight abnormal [Unknown]
  - Shigella infection [Unknown]
  - Helicobacter infection [Unknown]
  - Fatigue [Unknown]
  - Vomiting projectile [Unknown]
  - Foetal heart rate disorder [Unknown]
  - Foetal anticonvulsant syndrome [Unknown]
  - Coloboma [Unknown]
  - Psychomotor skills impaired [Unknown]
  - Ligament laxity [Unknown]
  - Speech disorder developmental [Unknown]
  - Dysmorphism [Unknown]
  - Conductive deafness [Unknown]
  - Disturbance in attention [Unknown]
  - Deafness [Unknown]
  - Diarrhoea [Unknown]
  - Vomiting [Unknown]
  - Pyrexia [Unknown]
  - Pelvic deformity [Unknown]
  - Foot deformity [Unknown]
  - Lordosis [Unknown]
  - Hypermobility syndrome [Unknown]
  - Kyphosis [Unknown]
  - Tooth malformation [Unknown]
  - Strabismus [Unknown]
  - Educational problem [Unknown]
  - Regurgitation [Unknown]
  - Gastrooesophageal reflux disease [Unknown]
  - Ear disorder [Unknown]
  - Nasal disorder [Unknown]
  - Visual acuity reduced [Unknown]
  - Pharyngeal disorder [Unknown]
  - Oesophagitis [Unknown]
  - Rotavirus infection [Unknown]
  - Pain in extremity [Unknown]
  - Musculoskeletal stiffness [Unknown]
  - Language disorder [Unknown]
  - Otitis media chronic [Unknown]
  - Emotional disorder [Unknown]
  - Disorientation [Unknown]
  - Balance disorder [Unknown]
  - Coordination abnormal [Unknown]
  - Gastrointestinal disorder [Unknown]
  - Dyspepsia [Unknown]
  - Foetal exposure during pregnancy [Unknown]
  - Ear infection [Unknown]
  - Arthralgia [Unknown]
  - Diarrhoea [Unknown]
  - Amblyopia [Unknown]
  - Learning disorder [Unknown]

NARRATIVE: CASE EVENT DATE: 20040201
